FAERS Safety Report 24385170 (Version 2)
Quarter: 2025Q2

REPORT INFORMATION
  Report Type: Report from Study
  Country: US (occurrence: US)
  Receive Date: 20241001
  Receipt Date: 20250507
  Transmission Date: 20250716
  Serious: No
  Sender: SUNOVION
  Company Number: US-SUMITOMO PHARMA SWITZERLAND GMBH-2024SPA002949

PATIENT

DRUGS (2)
  1. ORGOVYX [Suspect]
     Active Substance: RELUGOLIX
     Indication: Prostate cancer
     Dosage: 120 MG, QD
     Route: 048
     Dates: start: 20220726
  2. CALCIUM [Suspect]
     Active Substance: CALCIUM
     Indication: Bone disorder
     Route: 065

REACTIONS (9)
  - Joint swelling [Unknown]
  - Stress [Unknown]
  - Loss of personal independence in daily activities [Recovering/Resolving]
  - Bone disorder [Unknown]
  - Back pain [Unknown]
  - Hot flush [Unknown]
  - Feeling hot [Unknown]
  - Constipation [Recovered/Resolved]
  - Incorrect dose administered [Unknown]
